FAERS Safety Report 5894610-2 (Version None)
Quarter: 2008Q3

REPORT INFORMATION
  Report Type: 
  Country: None (occurrence: None)
  Receive Date: 20080922
  Receipt Date: 20080911
  Transmission Date: 20090109
  Serious: Yes (Other)
  Sender: FDA-Public Use
  Company Number: APP200800792

PATIENT
  Sex: Female

DRUGS (2)
  1. OXYTOCIN [Suspect]
     Indication: DRUG USE FOR UNKNOWN INDICATION
     Dosage: ONCE, INTRAVENOUS
     Route: 042
  2. LACTATED RINGERS (FLEBOBAG RING LACT) [Concomitant]

REACTIONS (10)
  - APGAR SCORE LOW [None]
  - CIRCUMSTANCE OR INFORMATION CAPABLE OF LEADING TO MEDICATION ERROR [None]
  - DRUG EXPOSURE DURING PREGNANCY [None]
  - FOETAL HEART RATE DECREASED [None]
  - MEDICATION ERROR [None]
  - NEONATAL RESPIRATORY DISTRESS SYNDROME [None]
  - PAIN [None]
  - PERINEAL LACERATION [None]
  - VACUUM EXTRACTOR DELIVERY [None]
  - WRONG DRUG ADMINISTERED [None]
